FAERS Safety Report 9785420 (Version 2)
Quarter: 2014Q1

REPORT INFORMATION
  Report Type: Spontaneous
  Country: US (occurrence: None)
  Receive Date: 20131224
  Receipt Date: 20140106
  Transmission Date: 20141002
  Serious: Yes (Other)
  Sender: FDA-Public Use
  Company Number: AUR-APL-2013-10480

PATIENT
  Age: 53 Year
  Sex: Female

DRUGS (2)
  1. NAPROXEN [Suspect]
     Indication: BACK PAIN
  2. ESOMEPRAZOLE (ESOMEPRAZOLE) [Suspect]
     Indication: PRODUCT USED FOR UNKNOWN INDICATION

REACTIONS (1)
  - Large intestinal ulcer [None]
